FAERS Safety Report 6096732-2 (Version None)
Quarter: 2009Q1

REPORT INFORMATION
  Report Type: 
  Country: None (occurrence: None)
  Receive Date: 20090227
  Receipt Date: 20090218
  Transmission Date: 20090719
  Serious: Yes (Other)
  Sender: FDA-Public Use
  Company Number: CN-PFIZER INC-2009173307

PATIENT

DRUGS (3)
  1. LIPITOR [Suspect]
     Dosage: 20 MG, 1X/DAY
     Route: 048
     Dates: start: 20090101, end: 20090129
  2. SOLU-MEDROL [Interacting]
     Indication: NEPHROTIC SYNDROME
     Dosage: 40 MG, 1X/DAY
     Route: 042
     Dates: start: 20090112, end: 20090213
  3. MYCOPHENOLATE MOFETIL [Interacting]
     Indication: NEPHROTIC SYNDROME
     Dosage: UNIT DOSE: 0.75 BID
     Route: 048
     Dates: start: 20090122

REACTIONS (2)
  - DRUG INTERACTION [None]
  - HEPATIC FUNCTION ABNORMAL [None]
